FAERS Safety Report 8264882-8 (Version None)
Quarter: 2012Q2

REPORT INFORMATION
  Report Type: 
  Country: None (occurrence: None)
  Receive Date: 20120404
  Receipt Date: 20120402
  Transmission Date: 20120825
  Serious: Yes (Life-Threatening, Hospitalization)
  Sender: FDA-Public Use
  Company Number: 2011SP048229

PATIENT
  Age: 29 Year
  Sex: Female
  Weight: 70.3075 kg

DRUGS (1)
  1. NUVARING [Suspect]
     Indication: CONTRACEPTION
     Dates: start: 20090101, end: 20100303

REACTIONS (17)
  - PULMONARY EMBOLISM [None]
  - CONSTIPATION [None]
  - ABDOMINAL PAIN [None]
  - HAEMORRHAGE [None]
  - THROMBOSIS [None]
  - FOOT OPERATION [None]
  - PLEURAL EFFUSION [None]
  - OVARIAN CYST [None]
  - VOMITING [None]
  - OCCUPATIONAL EXPOSURE TO TOXIC AGENT [None]
  - PULMONARY INFARCTION [None]
  - VAGINAL INFECTION [None]
  - BACK PAIN [None]
  - CHEST PAIN [None]
  - NAUSEA [None]
  - DEPRESSION [None]
  - WEIGHT INCREASED [None]
